FAERS Safety Report 20869396 (Version 1)
Quarter: 2022Q2

REPORT INFORMATION
  Report Type: Spontaneous
  Country: US (occurrence: US)
  Receive Date: 20220524
  Receipt Date: 20220524
  Transmission Date: 20220721
  Serious: Yes (Hospitalization)
  Sender: FDA-Public Use
  Company Number: US-PRINSTON PHARMACEUTICAL INC.-2022PRN00177

PATIENT
  Age: 26 Year
  Sex: Male
  Weight: 83.9 kg

DRUGS (3)
  1. AMPHETAMINE\DEXTROAMPHETAMINE [Suspect]
     Active Substance: AMPHETAMINE\DEXTROAMPHETAMINE
     Dosage: 20 MG
     Route: 065
  2. CAFFEINE\DIETARY SUPPLEMENT [Suspect]
     Active Substance: CAFFEINE\DIETARY SUPPLEMENT
     Route: 048
  3. METHADONE [Concomitant]
     Active Substance: METHADONE HYDROCHLORIDE
     Dosage: 20-25 ML (200-250 MG)
     Route: 048

REACTIONS (1)
  - Symptom masked [Recovered/Resolved]
